FAERS Safety Report 8473084-1 (Version None)
Quarter: 2012Q2

REPORT INFORMATION
  Report Type: 
  Country: None (occurrence: None)
  Receive Date: 20120627
  Receipt Date: 20120601
  Transmission Date: 20120825
  Serious: No
  Sender: FDA-Public Use
  Company Number: US-ASTRAZENECA-2012SE36989

PATIENT
  Age: 74 Year
  Sex: Male
  Weight: 88 kg

DRUGS (8)
  1. NEXIUM [Suspect]
     Indication: HIATUS HERNIA
     Route: 048
  2. ABODART [Concomitant]
  3. METFORMIN HCL [Concomitant]
  4. FLUTICASONE PROPIONATE [Concomitant]
  5. NEXIUM [Suspect]
     Dosage: TWICE A DAY
     Route: 048
  6. PRILOSEC [Suspect]
     Route: 048
  7. LEVOTHYROXINE [Concomitant]
  8. TAMSULOSIN HCL [Concomitant]

REACTIONS (2)
  - OFF LABEL USE [None]
  - DRUG INEFFECTIVE [None]
